FAERS Safety Report 5049246-2 (Version None)
Quarter: 2006Q3

REPORT INFORMATION
  Report Type: 
  Country: None (occurrence: None)
  Receive Date: 20060707
  Receipt Date: 20060623
  Transmission Date: 20061208
  Serious: Yes (Other)
  Sender: FDA-Public Use
  Company Number: TRP_0800_2006

PATIENT
  Age: 57 Year
  Sex: Male
  Weight: 74.8435 kg

DRUGS (5)
  1. RIBASPHERE [Suspect]
     Indication: HEPATITIS C
     Dosage: VAR BID PO
     Route: 048
     Dates: start: 20060201
  2. PEG-INTRON [Suspect]
     Indication: HEPATITIS C
     Dosage: 5 QWK SC
     Route: 058
     Dates: start: 20060201
  3. PEG-INTRON [Suspect]
     Indication: HEPATITIS C
     Dosage: 3.5 QWK SC
     Route: 058
     Dates: start: 20060101, end: 20060601
  4. SOMA [Concomitant]
  5. AMITRIPTYLINE HCL [Concomitant]

REACTIONS (3)
  - ASTHENIA [None]
  - PLATELET COUNT DECREASED [None]
  - RED BLOOD CELL COUNT DECREASED [None]
